FAERS Safety Report 5701552-1 (Version None)
Quarter: 2008Q2

REPORT INFORMATION
  Report Type: 
  Country: None (occurrence: None)
  Receive Date: 20080408
  Receipt Date: 20080328
  Transmission Date: 20081010
  Serious: Yes (Other)
  Sender: FDA-Public Use
  Company Number: 2008007943

PATIENT
  Age: 5 Year
  Sex: Female

DRUGS (1)
  1. PURELL UNSPECIFIED (ETHYL ALCOHOL) [Suspect]
     Dosage: ORAL
     Route: 048

REACTIONS (5)
  - ACCIDENTAL EXPOSURE [None]
  - BREATH ODOUR [None]
  - DIZZINESS [None]
  - FALL [None]
  - THROAT IRRITATION [None]
